FAERS Safety Report 8773163 (Version 1)
Quarter: 2012Q4

REPORT INFORMATION
  Report Type: Report from Study
  Country: JP (occurrence: JP)
  Receive Date: 20120907
  Receipt Date: 20120907
  Transmission Date: 20130627
  Serious: Yes (Other)
  Sender: FDA-Public Use
  Company Number: JP-VERTEX PHARMACEUTICAL INC.-AE-2012-004624

PATIENT

DRUGS (11)
  1. VX-950 [Suspect]
     Indication: HEPATITIS C
     Dosage: 2250 mg, qd
     Route: 048
     Dates: start: 20120126, end: 20120313
  2. REBETOL [Concomitant]
     Indication: HEPATITIS C
     Dosage: 800 mg, qd
     Route: 048
     Dates: start: 20120126, end: 20120228
  3. REBETOL [Concomitant]
     Dosage: 600 mg, qd
     Route: 048
     Dates: start: 20120229
  4. PEGINTERFERON ALFA-2B [Concomitant]
     Indication: HEPATITIS C
     Dosage: 1.5 ?g/kg, 1x/week
     Route: 051
     Dates: start: 20120126
  5. LOXONIN [Concomitant]
     Route: 048
     Dates: start: 20120126
  6. MUCOSTA [Concomitant]
     Route: 048
     Dates: start: 20120126
  7. AMOBAN [Concomitant]
     Route: 048
     Dates: start: 20120128
  8. LENDORMIN [Concomitant]
     Route: 048
     Dates: start: 20120128
  9. ANTEBATE OINTMENT [Concomitant]
     Route: 061
     Dates: start: 20120229
  10. URSO [Concomitant]
     Route: 048
     Dates: end: 20120202
  11. URSO [Concomitant]
     Route: 048
     Dates: start: 20120203

REACTIONS (1)
  - Erythema multiforme [Recovered/Resolved]
